FAERS Safety Report 17655351 (Version 1)
Quarter: 2020Q2

REPORT INFORMATION
  Report Type: Spontaneous
  Country: US (occurrence: US)
  Receive Date: 20200409
  Receipt Date: 20200409
  Transmission Date: 20200713
  Serious: Yes (Other)
  Sender: FDA-Public Use
  Company Number: None

PATIENT
  Sex: Male
  Weight: 72.12 kg

DRUGS (1)
  1. FECAL TRANSPLANT [Suspect]
     Active Substance: FECAL MICROBIOTA
     Indication: CLOSTRIDIUM DIFFICILE INFECTION
     Route: 054
     Dates: start: 20200201, end: 20200201

REACTIONS (2)
  - Recalled product administered [None]
  - Escherichia infection [None]

NARRATIVE: CASE EVENT DATE: 20200201
